FAERS Safety Report 4820987-2 (Version None)
Quarter: 2005Q4

REPORT INFORMATION
  Report Type: 
  Country: None (occurrence: None)
  Receive Date: 20051104
  Receipt Date: 20050817
  Transmission Date: 20060501
  Serious: Yes (Death, Life-Threatening, Hospitalization)
  Sender: FDA-Public Use
  Company Number: 200517350GDDC

PATIENT
  Age: 44 Year
  Sex: Male
  Weight: 62.5 kg

DRUGS (16)
  1. DOCETAXEL [Suspect]
     Indication: GASTRIC CANCER
     Route: 042
     Dates: start: 20050411, end: 20050729
  2. TRASTUZUMAB [Suspect]
     Indication: GASTRIC CANCER
     Route: 042
     Dates: start: 20050411, end: 20050411
  3. TRASTUZUMAB [Suspect]
     Route: 042
     Dates: start: 20050417, end: 20050729
  4. CISPLATIN [Suspect]
     Indication: GASTRIC CANCER
     Route: 042
     Dates: start: 20050411, end: 20050729
  5. NEXIUM [Concomitant]
     Dates: start: 20050404
  6. OXYCOCET [Concomitant]
     Dosage: DOSE: 1/2 TABLET
     Dates: start: 20050413
  7. STATEX [Concomitant]
     Dates: start: 20050630
  8. DURAGESIC-100 [Concomitant]
     Dates: start: 20050630
  9. MILK OF MAGNESIA TAB [Concomitant]
     Dates: start: 20050711
  10. MAGNESIUM-ROUGIER [Concomitant]
     Dates: start: 20050707
  11. TPN [Concomitant]
     Dosage: DOSE: 10 TABS
     Dates: start: 20050410
  12. TPN [Concomitant]
     Dosage: DOSE: 4 TEASPOONS PLUS 3 TABS
     Dates: start: 20050410
  13. DIGESTIVES, INCL ENZYMES [Concomitant]
     Dosage: DOSE: 3 TABS
     Dates: start: 20050410
  14. POTASSIUM CHLORIDE [Concomitant]
     Dosage: DOSE: 3 TABLETS
     Dates: start: 20050410
  15. DIGESTIVES, INCL ENZYMES [Concomitant]
     Dosage: DOSE: 3 TABLETS
     Dates: start: 20050410
  16. GASTROPROTECT [Concomitant]
     Dosage: DOSE: 2-4 TABLETS
     Dates: start: 20050410

REACTIONS (10)
  - ANAEMIA [None]
  - BLOOD PRESSURE DECREASED [None]
  - DEPRESSED LEVEL OF CONSCIOUSNESS [None]
  - DEVICE MIGRATION [None]
  - GASTROINTESTINAL HAEMORRHAGE [None]
  - PULSE PRESSURE DECREASED [None]
  - TACHYCARDIA [None]
  - THROMBOSIS [None]
  - TUMOUR HAEMORRHAGE [None]
  - UPPER GASTROINTESTINAL HAEMORRHAGE [None]
